FAERS Safety Report 21160451 (Version 1)
Quarter: 2022Q3

REPORT INFORMATION
  Report Type: Spontaneous
  Country: BE (occurrence: BE)
  Receive Date: 20220802
  Receipt Date: 20220802
  Transmission Date: 20221027
  Serious: Yes (Hospitalization, Other)
  Sender: FDA-Public Use
  Company Number: BE-NOVARTISPH-NVSC2022BE173561

PATIENT
  Age: 79 Year
  Sex: Male

DRUGS (9)
  1. DEXAMETHASONE [Suspect]
     Active Substance: DEXAMETHASONE
     Indication: Product used for unknown indication
     Dosage: 20 MG (1 PER 1 WEEK)
     Route: 048
     Dates: start: 20200513, end: 20200811
  2. VELCADE [Suspect]
     Active Substance: BORTEZOMIB
     Indication: Product used for unknown indication
     Dosage: 2.45 MG (1 PER WEEK)
     Route: 058
     Dates: start: 20200610, end: 20200811
  3. REVLIMID [Suspect]
     Active Substance: LENALIDOMIDE
     Indication: Plasma cell myeloma
     Dosage: 10 MG, QD
     Route: 048
     Dates: start: 20200513, end: 20200602
  4. REVLIMID [Suspect]
     Active Substance: LENALIDOMIDE
     Dosage: UNK (REST PERIOD)
     Route: 048
     Dates: start: 20200603, end: 20200609
  5. REVLIMID [Suspect]
     Active Substance: LENALIDOMIDE
     Dosage: 10 MG, QD
     Route: 048
     Dates: start: 20200610, end: 20200623
  6. REVLIMID [Suspect]
     Active Substance: LENALIDOMIDE
     Dosage: UNK (REST PERIOD)
     Route: 048
     Dates: start: 20200624, end: 20200630
  7. REVLIMID [Suspect]
     Active Substance: LENALIDOMIDE
     Dosage: 10 MG, QD
     Route: 048
     Dates: start: 20200701, end: 20200721
  8. REVLIMID [Suspect]
     Active Substance: LENALIDOMIDE
     Dosage: UNK (REST PERIOD)
     Route: 048
     Dates: start: 20200722, end: 20200728
  9. REVLIMID [Suspect]
     Active Substance: LENALIDOMIDE
     Dosage: 10 MG, QD
     Route: 048
     Dates: start: 20200729, end: 20200811

REACTIONS (1)
  - Pneumonia [Recovered/Resolved]

NARRATIVE: CASE EVENT DATE: 20220211
